FAERS Safety Report 10779152 (Version 2)
Quarter: 2015Q1

REPORT INFORMATION
  Report Type: Spontaneous
  Country: US (occurrence: US)
  Receive Date: 20150210
  Receipt Date: 20150313
  Transmission Date: 20150721
  Serious: Yes (Hospitalization, Other)
  Sender: FDA-Public Use
  Company Number: US-009507513-1502USA002985

PATIENT
  Age: 27 Year
  Sex: Female
  Weight: 69.39 kg

DRUGS (1)
  1. NEXPLANON [Suspect]
     Active Substance: ETONOGESTREL
     Indication: CONTRACEPTION
     Dosage: 1 ROD FOR 3 YEARS
     Route: 059
     Dates: start: 20131202

REACTIONS (12)
  - Ovarian cyst [Unknown]
  - Chest discomfort [Unknown]
  - Panic attack [Unknown]
  - Stress [Unknown]
  - Migraine [Unknown]
  - Malaise [Unknown]
  - Dyspnoea [Unknown]
  - Mood swings [Unknown]
  - Haemorrhage [Unknown]
  - Nervousness [Unknown]
  - Irritability [Unknown]
  - Acne [Unknown]

NARRATIVE: CASE EVENT DATE: 201312
